FAERS Safety Report 6122789-6 (Version None)
Quarter: 2009Q1

REPORT INFORMATION
  Report Type: 
  Country: None (occurrence: None)
  Receive Date: 20090318
  Receipt Date: 20081021
  Transmission Date: 20090719
  Serious: No
  Sender: FDA-Public Use
  Company Number: US-AMGEN-KDL314795

PATIENT
  Sex: Female

DRUGS (1)
  1. NEULASTA [Suspect]
     Indication: CHEMOTHERAPY

REACTIONS (7)
  - ADVERSE DRUG REACTION [None]
  - ARTHRALGIA [None]
  - GAIT DISTURBANCE [None]
  - HAEMORRHAGE [None]
  - OEDEMA PERIPHERAL [None]
  - SECRETION DISCHARGE [None]
  - WOUND SECRETION [None]
